FAERS Safety Report 6879934-4 (Version None)
Quarter: 2010Q3

REPORT INFORMATION
  Report Type: 
  Country: None (occurrence: None)
  Receive Date: 20100728
  Receipt Date: 20100715
  Transmission Date: 20110219
  Serious: Yes (Other)
  Sender: FDA-Public Use
  Company Number: PHHY2010US46889

PATIENT
  Sex: Male

DRUGS (3)
  1. CYCLOSPORINE [Suspect]
     Indication: RENAL TRANSPLANT
  2. PREDNISONE [Concomitant]
     Dosage: UNK
  3. CHEMOTHERAPEUTICS NOS [Concomitant]

REACTIONS (34)
  - ABDOMINAL PAIN UPPER [None]
  - ANAEMIA [None]
  - AZOTAEMIA [None]
  - BLOOD CALCIUM ABNORMAL [None]
  - BLOOD PHOSPHORUS ABNORMAL [None]
  - BONE DISORDER [None]
  - BONE PAIN [None]
  - CARDIAC DISORDER [None]
  - CHEST PAIN [None]
  - CHOLECYSTECTOMY [None]
  - COLON CANCER [None]
  - COUGH [None]
  - DEPRESSION [None]
  - DIZZINESS [None]
  - DYSPNOEA [None]
  - GAIT DISTURBANCE [None]
  - HYPERPARATHYROIDISM [None]
  - HYPERTENSION [None]
  - INTESTINAL ANASTOMOSIS [None]
  - INTESTINAL RESECTION [None]
  - KNEE OPERATION [None]
  - MALAISE [None]
  - MUSCULAR WEAKNESS [None]
  - PARATHYROIDECTOMY [None]
  - PRESYNCOPE [None]
  - RECTAL HAEMORRHAGE [None]
  - RENAL FAILURE CHRONIC [None]
  - RENAL TRANSPLANT [None]
  - ROTATOR CUFF REPAIR [None]
  - SKIN CANCER [None]
  - SPINAL CORD NEOPLASM [None]
  - SYNCOPE [None]
  - TINNITUS [None]
  - TUMOUR EXCISION [None]
